FAERS Safety Report 4272876-2 (Version None)
Quarter: 2004Q1

REPORT INFORMATION
  Report Type: 
  Country: None (occurrence: None)
  Receive Date: 20040115
  Receipt Date: 20031217
  Transmission Date: 20041129
  Serious: No
  Sender: FDA-Public Use
  Company Number: 6925

PATIENT
  Age: 63 Year
  Sex: Male

DRUGS (3)
  1. CISPLATIN [Suspect]
     Indication: GASTRIC CANCER
     Dosage: SEE IMAGE
     Route: 013
  2. EPIRUBICIN [Suspect]
     Indication: GASTRIC CANCER
     Dosage: SEE IMAGE
     Route: 013
  3. MITOMYCIN [Suspect]
     Indication: GASTRIC CANCER
     Dosage: SEE IMAGE
     Route: 013

REACTIONS (3)
  - BONE MARROW DEPRESSION [None]
  - GASTRIC ULCER [None]
  - THERAPEUTIC RESPONSE DECREASED [None]
